FAERS Safety Report 16210837 (Version 2)
Quarter: 2019Q2

REPORT INFORMATION
  Report Type: Spontaneous
  Country: CA (occurrence: CA)
  Receive Date: 20190418
  Receipt Date: 20190509
  Transmission Date: 20190711
  Serious: Yes (Death, Other)
  Sender: FDA-Public Use
  Company Number: CA-RECORDATI RARE DISEASES INC.-CA-R13005-19-00098

PATIENT
  Age: 3 Month
  Sex: Male

DRUGS (4)
  1. VINCRISTINE [Suspect]
     Active Substance: VINCRISTINE
     Indication: EMBRYONAL RHABDOMYOSARCOMA
     Route: 065
  2. IRINOTECAN [Suspect]
     Active Substance: IRINOTECAN
     Indication: EMBRYONAL RHABDOMYOSARCOMA
     Route: 065
  3. CYCLOPHOSPHAMIDE. [Suspect]
     Active Substance: CYCLOPHOSPHAMIDE
     Indication: EMBRYONAL RHABDOMYOSARCOMA
     Route: 065
  4. DACTINOMYCIN [Suspect]
     Active Substance: DACTINOMYCIN
     Indication: EMBRYONAL RHABDOMYOSARCOMA
     Route: 065

REACTIONS (4)
  - Cerebellar tumour [Unknown]
  - Cytogenetic abnormality [Unknown]
  - Drug resistance [Unknown]
  - Metastases to central nervous system [Fatal]
